FAERS Safety Report 8997838 (Version 1)
Quarter: 2013Q1

REPORT INFORMATION
  Report Type: Spontaneous
  Country: CN (occurrence: CN)
  Receive Date: 20130104
  Receipt Date: 20130104
  Transmission Date: 20140127
  Serious: Yes (Hospitalization)
  Sender: FDA-Public Use
  Company Number: CN-GLAXOSMITHKLINE-B0854452A

PATIENT
  Age: 22 Year
  Sex: Female

DRUGS (3)
  1. LAMICTAL [Suspect]
     Indication: BIPOLAR DISORDER
     Dosage: 50MG PER DAY
     Route: 048
     Dates: start: 20111016, end: 20111030
  2. CLONAZEPAM [Concomitant]
     Indication: BIPOLAR DISORDER
     Dosage: .25MG PER DAY
     Route: 048
     Dates: start: 20111014, end: 20111030
  3. SODIUM VALPROATE [Concomitant]
     Indication: BIPOLAR DISORDER
     Dosage: .2G TWICE PER DAY
     Route: 048
     Dates: start: 20111014, end: 20111016

REACTIONS (14)
  - Stevens-Johnson syndrome [Recovered/Resolved]
  - Rash [Unknown]
  - Oropharyngeal pain [Unknown]
  - Asthenia [Unknown]
  - Pruritus [Unknown]
  - Flushing [Unknown]
  - Mouth ulceration [Unknown]
  - Blister [Unknown]
  - Trismus [Unknown]
  - Ill-defined disorder [Unknown]
  - Eye discharge [Unknown]
  - Blister [Unknown]
  - Sinus tachycardia [Unknown]
  - Insomnia [Recovered/Resolved]
